FAERS Safety Report 6783638-6 (Version None)
Quarter: 2010Q2

REPORT INFORMATION
  Report Type: 
  Country: None (occurrence: None)
  Receive Date: 20100622
  Receipt Date: 20100614
  Transmission Date: 20101027
  Serious: Yes (Hospitalization, Disabling, Other)
  Sender: FDA-Public Use
  Company Number: PHHO2010IT06465

PATIENT
  Sex: Male
  Weight: 76 kg

DRUGS (6)
  1. BLINDED ALISKIREN ALI+TAB+CF [Suspect]
     Dosage: CODE NOT BROKEN
     Route: 048
     Dates: start: 20100401, end: 20100428
  2. BLINDED ENALAPRIL COMP-ENA+ [Suspect]
     Dosage: CODE NOT BROKEN
     Route: 048
     Dates: start: 20100401, end: 20100428
  3. BLINDED NO TREATMENT RECEIVED NOMED [Suspect]
     Dosage: CODE NOT BROKEN
     Route: 048
     Dates: start: 20100401, end: 20100428
  4. COMPARATOR ENALAPRIL [Suspect]
     Indication: CARDIAC FAILURE
     Dosage: UNK
     Route: 048
     Dates: start: 20100303
  5. ALISKIREN [Suspect]
     Indication: CARDIAC FAILURE
     Dosage: UNK
     Route: 048
     Dates: start: 20100318
  6. ISOSORBIDE MONONITRATE [Concomitant]

REACTIONS (6)
  - CARDIAC FAILURE [None]
  - DISEASE PROGRESSION [None]
  - HYPOTENSION [None]
  - LIVER ABSCESS [None]
  - LOW CARDIAC OUTPUT SYNDROME [None]
  - RENAL IMPAIRMENT [None]
